FAERS Safety Report 5472624-4 (Version None)
Quarter: 2007Q4

REPORT INFORMATION
  Report Type: 
  Country: None (occurrence: None)
  Receive Date: 20071001
  Receipt Date: 20061129
  Transmission Date: 20080405
  Serious: No
  Sender: FDA-Public Use
  Company Number: US-ASTRAZENECA-2006UW16321

PATIENT
  Age: 66 Year
  Sex: Female

DRUGS (1)
  1. ARIMIDEX [Suspect]
     Route: 048
     Dates: start: 20030101

REACTIONS (4)
  - HEADACHE [None]
  - NECK PAIN [None]
  - PAIN [None]
  - PHARYNGOLARYNGEAL PAIN [None]
